FAERS Safety Report 5353087-6 (Version None)
Quarter: 2007Q2

REPORT INFORMATION
  Report Type: 
  Country: None (occurrence: None)
  Receive Date: 20070606
  Receipt Date: 20070509
  Transmission Date: 20071010
  Serious: Yes (Disabling, Other)
  Sender: FDA-Public Use
  Company Number: 2007VX001410

PATIENT
  Sex: Male

DRUGS (3)
  1. FLURAZEPAM HYDROCHLORIDE [Suspect]
     Indication: SLEEP DISORDER
     Dosage: 30 MG; QD; PO
     Route: 048
     Dates: start: 19860101, end: 20020101
  2. ZYPREXA [Concomitant]
  3. TAVOR [Concomitant]

REACTIONS (12)
  - ABASIA [None]
  - CONVULSION [None]
  - DELUSIONAL DISORDER, PERSECUTORY TYPE [None]
  - DRUG TOXICITY [None]
  - FLUOROSIS [None]
  - HALLUCINATION [None]
  - ILL-DEFINED DISORDER [None]
  - JOINT STIFFNESS [None]
  - MUSCLE RIGIDITY [None]
  - OBSTRUCTIVE AIRWAYS DISORDER [None]
  - TETANY [None]
  - THROAT TIGHTNESS [None]
